FAERS Safety Report 24563459 (Version 1)
Quarter: 2024Q4

REPORT INFORMATION
  Report Type: Report from Study
  Country: US (occurrence: US)
  Receive Date: 20241030
  Receipt Date: 20241030
  Transmission Date: 20250115
  Serious: Yes (Other)
  Sender: AMGEN
  Company Number: US-AMGEN-USASL2024171388

PATIENT
  Age: 76 Year
  Sex: Male

DRUGS (4)
  1. TEPEZZA [Suspect]
     Active Substance: TEPROTUMUMAB-TRBW
     Indication: Endocrine ophthalmopathy
     Dosage: 20 MILLIGRAM/KILOGRAM (FIRST INFUSION)
     Route: 042
     Dates: start: 20240801
  2. TEPEZZA [Suspect]
     Active Substance: TEPROTUMUMAB-TRBW
     Dosage: 20 MILLIGRAM/KILOGRAM (SECOND INFUSION)
     Route: 042
     Dates: start: 20240822
  3. TEPEZZA [Suspect]
     Active Substance: TEPROTUMUMAB-TRBW
     Dosage: 20 MILLIGRAM/KILOGRAM, THIRD INFUSION
     Route: 040
     Dates: start: 20240923
  4. TEPEZZA [Suspect]
     Active Substance: TEPROTUMUMAB-TRBW
     Dosage: 20 MILLIGRAM/KILOGRAM, FOURTH INFUSION
     Route: 040
     Dates: start: 20241021

REACTIONS (10)
  - Diabetes mellitus [Unknown]
  - Hypertension [Unknown]
  - Asthenia [Unknown]
  - Inappropriate schedule of product administration [Unknown]
  - Oral pain [Unknown]
  - Dysphagia [Unknown]
  - Weight decreased [Unknown]
  - Gait disturbance [Unknown]
  - Pruritus [Unknown]
  - Tinnitus [Unknown]

NARRATIVE: CASE EVENT DATE: 20240801
